FAERS Safety Report 21399913 (Version 1)
Quarter: 2022Q4

REPORT INFORMATION
  Report Type: Spontaneous
  Country: US (occurrence: US)
  Receive Date: 20221002
  Receipt Date: 20221002
  Transmission Date: 20230113
  Serious: No
  Sender: FDA-Public Use
  Company Number: None

PATIENT
  Age: 64 Year
  Sex: Female
  Weight: 86.18 kg

DRUGS (15)
  1. VASCEPA [Suspect]
     Active Substance: ICOSAPENT ETHYL
     Indication: Blood cholesterol increased
     Dosage: FREQUENCY TEXT : TWICE DAILY
     Route: 048
     Dates: start: 2019
  2. Colesezelam [Concomitant]
     Indication: Blood cholesterol
     Route: 048
     Dates: start: 2018
  3. MINERALS\VITAMINS [Concomitant]
     Active Substance: MINERALS\VITAMINS
     Indication: Product used for unknown indication
     Dosage: FREQUENCY TEXT : UNKNOWN
     Route: 048
  4. ASMANEX [Concomitant]
     Active Substance: MOMETASONE FUROATE
     Indication: Asthma
     Dosage: FREQUENCY TEXT : UNKNOWN
  5. DULERA [Concomitant]
     Active Substance: FORMOTEROL FUMARATE DIHYDRATE\MOMETASONE FUROATE
     Indication: Asthma
     Dosage: 200MCG IN 5 MCG PER ACTUATION : INHALER 2 PUFFS TWICE DAILY? FREQUENCY TEXT : TWICE DAILY
     Route: 055
  6. VITAMIN D3 [Concomitant]
     Active Substance: CHOLECALCIFEROL
     Indication: Product used for unknown indication
     Dosage: FREQUENCY TEXT : UNKNOWN
     Route: 048
     Dates: start: 2016
  7. JWH-018 [Concomitant]
     Active Substance: JWH-018
     Indication: Product used for unknown indication
     Dosage: FREQUENCY TEXT : UNKNOWN
     Route: 048
     Dates: start: 2016
  8. ISRADIPINE [Concomitant]
     Active Substance: ISRADIPINE
     Indication: Hypertension
     Dosage: FREQUENCY TEXT : TWICE DAILY
     Route: 048
     Dates: start: 2006
  9. NEXLETOL [Concomitant]
     Active Substance: BEMPEDOIC ACID
     Indication: Blood cholesterol increased
     Dosage: 180 MG WEEKLY? FREQUENCY TEXT : WEEKLY
     Route: 048
     Dates: start: 2020
  10. EZETIMIBE [Concomitant]
     Active Substance: EZETIMIBE
     Indication: Blood cholesterol increased
     Dosage: 1/2 TAB TWICE WEEKLY? FREQUENCY TEXT : TWICE WEEKLY
     Route: 048
  11. ASPIRIN [Concomitant]
     Active Substance: ASPIRIN
     Indication: Ventricular extrasystoles
     Dosage: 81 MG DAILY
     Route: 048
     Dates: start: 2001
  12. CIMETIDINE [Concomitant]
     Active Substance: CIMETIDINE
     Indication: Gastrooesophageal reflux disease
     Dosage: 200 MG DAILY
     Route: 048
  13. Iprapropium [Concomitant]
     Indication: Upper-airway cough syndrome
     Dosage: 0.06 % 42 MCG PER SPRAY 2 SPRAYS 1 ? 4 TIMES A DAY? FREQUENCY TEXT : 1-4 TIMES A DAY
  14. FLONASE [Concomitant]
     Active Substance: FLUTICASONE PROPIONATE
     Indication: Product used for unknown indication
     Dosage: 27.5 MCG PER SPRAY 2 SPRAYS ONCE DAILY IN EACH NOSTRIL? FREQUENCY TEXT : TWICE DAILY
     Route: 045
  15. OLMESARTAN [Concomitant]
     Active Substance: OLMESARTAN
     Indication: Hypertension
     Dosage: 5MG ONCE DAILY AS NEEDED WITH PARAMETERS? FREQUENCY TEXT : ONCE DAILY
     Route: 048

REACTIONS (8)
  - Liver operation [Recovered/Resolved]
  - Sinus operation [Recovered/Resolved]
  - Shoulder operation [Recovered/Resolved]
  - Nausea [Not Recovered/Not Resolved]
  - Product taste abnormal [Recovering/Resolving]
  - Product odour abnormal [Recovered/Resolved]
  - Product physical issue [Unknown]
  - Product leakage [Unknown]

NARRATIVE: CASE EVENT DATE: 20200501
